FAERS Safety Report 6814319-8 (Version None)
Quarter: 2010Q3

REPORT INFORMATION
  Report Type: 
  Country: None (occurrence: None)
  Receive Date: 20100702
  Receipt Date: 20100629
  Transmission Date: 20110219
  Serious: Yes (Death)
  Sender: FDA-Public Use
  Company Number: RU-ASTRAZENECA-2010SE30500

PATIENT
  Age: 23 Year
  Sex: Female

DRUGS (4)
  1. NAROPIN [Suspect]
     Indication: ANAESTHESIA
     Route: 008
     Dates: start: 20100129, end: 20100129
  2. PROMEDOL [Concomitant]
     Indication: ANALGESIC THERAPY
     Route: 030
     Dates: start: 20100129, end: 20100129
  3. NO-SPA [Concomitant]
     Indication: ANAESTHESIA
     Dosage: 6.0 IN 200 ML OF 0.9% NACL SALINE
     Route: 042
     Dates: start: 20100129, end: 20100129
  4. PIRACETAM [Concomitant]
     Indication: PROPHYLAXIS
     Dosage: 5 ML IN 200 ML OF 0.9% NACL SALINE
     Route: 042
     Dates: start: 20100129, end: 20100129

REACTIONS (3)
  - ASTHENIA [None]
  - CIRCULATORY COLLAPSE [None]
  - HYPOAESTHESIA [None]
